FAERS Safety Report 10149386 (Version 1)
Quarter: 2014Q2

REPORT INFORMATION
  Report Type: Spontaneous
  Country: US (occurrence: None)
  Receive Date: 20140501
  Receipt Date: 20140501
  Transmission Date: 20141212
  Serious: Yes (Hospitalization)
  Sender: FDA-Public Use
  Company Number: None

PATIENT
  Age: 39 Year
  Sex: Female

DRUGS (21)
  1. WARFARIN [Suspect]
     Indication: DEEP VEIN THROMBOSIS
     Dosage: 3 MG  M/F, 5 MG  ROW, PO
     Route: 048
     Dates: start: 20130826, end: 20130829
  2. ACETAMINOPHEN [Concomitant]
  3. ASPIRIN [Concomitant]
  4. ATORVASTATIN [Concomitant]
  5. CINACALCET [Concomitant]
  6. DIAZEPAM [Concomitant]
  7. DIPHENHYDRAMINE [Concomitant]
  8. DOCUSATE [Concomitant]
  9. GABAPENTIN [Concomitant]
  10. HYDROMORPHINE [Concomitant]
  11. HYDROXYCHLOROQUINE [Concomitant]
  12. NICOTINE [Concomitant]
  13. NIFEDIPINE [Concomitant]
  14. NITROGLYCERIN [Concomitant]
  15. OXYCODONE [Concomitant]
  16. PREDNISONE [Concomitant]
  17. RANITIDINE [Concomitant]
  18. SENNA [Concomitant]
  19. SEVELAMER [Concomitant]
  20. TRAZODONE [Concomitant]
  21. HEPARIN [Concomitant]

REACTIONS (3)
  - International normalised ratio increased [None]
  - Arteriovenous fistula site complication [None]
  - Arteriovenous fistula site haemorrhage [None]
